FAERS Safety Report 23822338 (Version 2)
Quarter: 2024Q4

REPORT INFORMATION
  Report Type: Spontaneous
  Country: US (occurrence: US)
  Receive Date: 20240506
  Receipt Date: 20241010
  Transmission Date: 20250115
  Serious: No
  Sender: TEVA
  Company Number: US-TEVA-VS-3185426

PATIENT
  Sex: Male

DRUGS (5)
  1. TRIAMTERENE AND HYDROCHLOROTHIAZIDE [Suspect]
     Active Substance: HYDROCHLOROTHIAZIDE\TRIAMTERENE
     Indication: Product used for unknown indication
     Dosage: 37.5-25 MG-MG
     Route: 048
  2. FLUOXETINE [Suspect]
     Active Substance: FLUOXETINE HYDROCHLORIDE
     Indication: Product used for unknown indication
     Route: 048
  3. ATORVASTATIN [Concomitant]
     Active Substance: ATORVASTATIN
     Indication: Product used for unknown indication
  4. OMEPRAZOLE [Concomitant]
     Active Substance: OMEPRAZOLE
  5. PREDNISONE [Suspect]
     Active Substance: PREDNISONE
     Indication: Pain
     Route: 065
     Dates: start: 20240615

REACTIONS (4)
  - Hyperhidrosis [Unknown]
  - Pruritus [Unknown]
  - Pain [Unknown]
  - Thermal burn [Unknown]

NARRATIVE: CASE EVENT DATE: 20240416
